FAERS Safety Report 5476714-1 (Version None)
Quarter: 2007Q4

REPORT INFORMATION
  Report Type: 
  Country: None (occurrence: None)
  Receive Date: 20071004
  Receipt Date: 20070905
  Transmission Date: 20080405
  Serious: No
  Sender: FDA-Public Use
  Company Number: A0678854A

PATIENT
  Age: 67 Year
  Sex: Male

DRUGS (7)
  1. ADVAIR DISKUS 100/50 [Suspect]
     Indication: ASTHMA
     Dosage: 2PUFF TWICE PER DAY
     Route: 055
     Dates: start: 20070718
  2. SINGULAIR [Concomitant]
  3. FLOMAX [Concomitant]
  4. PROSCAR [Concomitant]
  5. ALTACE [Concomitant]
  6. VYTORIN [Concomitant]
  7. ASPIRIN [Concomitant]

REACTIONS (2)
  - DYSPHONIA [None]
  - PHARMACEUTICAL PRODUCT COMPLAINT [None]
